FAERS Safety Report 4291452-9 (Version None)
Quarter: 2004Q1

REPORT INFORMATION
  Report Type: 
  Country: None (occurrence: None)
  Receive Date: 20040210
  Receipt Date: 20040210
  Transmission Date: 20041129
  Serious: Yes (Hospitalization)
  Sender: FDA-Public Use
  Company Number: None

PATIENT
  Age: 71 Year
  Sex: 0
  Weight: 72 kg

DRUGS (13)
  1. SULFAMETHEXAZOLE 800/TRIMETHOPRIM DS TABLETS 160 [Suspect]
     Indication: PROPHYLAXIS
     Dosage: ONE TABLET TWICE A DAY ORAL
     Route: 048
     Dates: start: 20040105
  2. SULFAMETHEXAZOLE 800/TRIMETHOPRIM DS TABLETS 160 [Suspect]
     Indication: URINARY TRACT INFECTION
     Dosage: ONE TABLET TWICE A DAY ORAL
     Route: 048
     Dates: start: 20040105
  3. SULFAMETHEXAZOLE 800/TRIMETHOPRIM DS TABLETS 160 [Suspect]
     Indication: PROPHYLAXIS
     Dosage: ONE TABLET TWICE A DAY ORAL
     Route: 048
     Dates: start: 20040111
  4. SULFAMETHEXAZOLE 800/TRIMETHOPRIM DS TABLETS 160 [Suspect]
     Indication: URINARY TRACT INFECTION
     Dosage: ONE TABLET TWICE A DAY ORAL
     Route: 048
     Dates: start: 20040111
  5. AMLODIPINE [Concomitant]
  6. ASPIRIN [Concomitant]
  7. M.V.I. [Concomitant]
  8. SIMVASTATIN [Concomitant]
  9. FINASTERIDE [Concomitant]
  10. TAMSULASIN [Concomitant]
  11. MIRTAZAPINE [Concomitant]
  12. TRAZODONE HCL [Concomitant]
  13. BUPROPION HCL [Concomitant]

REACTIONS (2)
  - RASH [None]
  - RENAL FAILURE ACUTE [None]
